FAERS Safety Report 17306034 (Version 2)
Quarter: 2020Q2

REPORT INFORMATION
  Report Type: Report from Study
  Country: GB (occurrence: GB)
  Receive Date: 20200123
  Receipt Date: 20200608
  Transmission Date: 20200713
  Serious: Yes (Death, Hospitalization, Other)
  Sender: FDA-Public Use
  Company Number: GB-TEVA-2020-GB-1171760

PATIENT
  Age: 64 Year
  Sex: Female

DRUGS (17)
  1. DOCETAXEL. [Suspect]
     Active Substance: DOCETAXEL
     Dosage: 130 MG
     Route: 042
     Dates: start: 20150522, end: 20150522
  2. PERTUZUMAB. [Suspect]
     Active Substance: PERTUZUMAB
     Indication: BREAST CANCER METASTATIC
     Dosage: LOADING DOSE, 840 MG
     Route: 042
     Dates: start: 20150520, end: 20150520
  3. FLUCONAZOLE. [Concomitant]
     Active Substance: FLUCONAZOLE
     Route: 048
     Dates: start: 20160122, end: 20160203
  4. FLUCLOXACILLIN [Concomitant]
     Active Substance: FLUCLOXACILLIN
     Indication: CELLULITIS
     Route: 048
     Dates: start: 20150929
  5. STREPTOKINASE [Concomitant]
     Active Substance: STREPTOKINASE
     Dosage: 250000
     Route: 042
     Dates: start: 20151005, end: 20151014
  6. AMOXYCILLIN [Concomitant]
     Active Substance: AMOXICILLIN
     Indication: CELLULITIS
     Route: 048
     Dates: start: 20150929
  7. DALTEPARIN [Concomitant]
     Active Substance: DALTEPARIN
     Route: 058
     Dates: start: 20151005, end: 20151014
  8. DOCETAXEL. [Suspect]
     Active Substance: DOCETAXEL
     Indication: BREAST CANCER METASTATIC
     Dosage: 90 MG
     Route: 042
     Dates: start: 20150714, end: 20150915
  9. CALOGEN EXTRA [Concomitant]
     Dosage: SHORTS
     Route: 048
  10. TAZOCIN [Concomitant]
     Active Substance: PIPERACILLIN SODIUM\TAZOBACTAM SODIUM
     Indication: PYREXIA
     Dosage: 4.5 MG
     Route: 042
     Dates: start: 20151005, end: 20151012
  11. DOCETAXEL. [Suspect]
     Active Substance: DOCETAXEL
     Dosage: 80 MG
     Route: 042
     Dates: start: 20150622, end: 20150622
  12. TRASTUZUMAB. [Suspect]
     Active Substance: TRASTUZUMAB
     Dosage: LOADING DOSE. 525 MG
     Route: 042
     Dates: start: 20150521, end: 20150521
  13. PERTUZUMAB. [Suspect]
     Active Substance: PERTUZUMAB
     Dosage: MAINTAINANCE DOSE, 420 MG
     Route: 042
     Dates: start: 20150622, end: 20151119
  14. AMOXYCILLIN [Concomitant]
     Active Substance: AMOXICILLIN
     Route: 065
     Dates: start: 20160122
  15. TRASTUZUMAB. [Suspect]
     Active Substance: TRASTUZUMAB
     Indication: BREAST CANCER METASTATIC
     Dosage: MAINTAINANCE DOSE. 399 MG
     Route: 042
     Dates: start: 20150622, end: 20151119
  16. RIVAROXABAN [Concomitant]
     Active Substance: RIVAROXABAN
     Indication: PYREXIA
     Dosage: 15 MG
     Route: 048
     Dates: start: 20151014, end: 20151103
  17. RIVAROXABAN [Concomitant]
     Active Substance: RIVAROXABAN
     Route: 048
     Dates: start: 20151104

REACTIONS (10)
  - Decreased appetite [Recovered/Resolved]
  - Catheter site erythema [Recovered/Resolved]
  - Productive cough [Recovered/Resolved]
  - Lower respiratory tract infection [Recovered/Resolved]
  - Nausea [Recovered/Resolved]
  - Catheter site hypersensitivity [Recovered/Resolved]
  - Device related infection [Recovered/Resolved]
  - Sepsis [Recovered/Resolved]
  - Cellulitis [Recovered/Resolved]
  - Pulmonary embolism [Recovered/Resolved]

NARRATIVE: CASE EVENT DATE: 201509
